FAERS Safety Report 16735186 (Version 1)
Quarter: 2019Q3

REPORT INFORMATION
  Report Type: Spontaneous
  Country: US (occurrence: US)
  Receive Date: 20190708
  Receipt Date: 20190708
  Transmission Date: 20191005
  Serious: Yes (Hospitalization)
  Sender: FDA-Public Use
  Company Number: None

PATIENT
  Age: 39 Year
  Sex: Male

DRUGS (1)
  1. NEULASTA [Suspect]
     Active Substance: PEGFILGRASTIM
     Indication: AGRANULOCYTOSIS
     Dosage: ?          OTHER FREQUENCY:EVERY 28 DAYS;?
     Route: 058
     Dates: start: 201904

REACTIONS (2)
  - Myalgia [None]
  - Bone pain [None]

NARRATIVE: CASE EVENT DATE: 20190705
